FAERS Safety Report 8330112-1 (Version None)
Quarter: 2012Q2

REPORT INFORMATION
  Report Type: 
  Country: None (occurrence: None)
  Receive Date: 20120420
  Receipt Date: 20120413
  Transmission Date: 20120825
  Serious: Yes (Other)
  Sender: FDA-Public Use
  Company Number: AEITA201200195

PATIENT
  Age: 77 Year
  Sex: Female
  Weight: 68 kg

DRUGS (4)
  1. POTASSIUM CANRENOATE [Concomitant]
  2. FUROSEMIDE [Concomitant]
  3. ALBUTEIN [Suspect]
     Indication: ASCITES
     Dosage: 10 GM;TOTAL;IV
     Route: 042
     Dates: start: 20120326, end: 20120326
  4. OMEPRAZOLE [Concomitant]

REACTIONS (2)
  - RESPIRATORY FAILURE [None]
  - RASH [None]
